FAERS Safety Report 24276151 (Version 1)
Quarter: 2024Q3

REPORT INFORMATION
  Report Type: Spontaneous
  Country: JP (occurrence: JP)
  Receive Date: 20240903
  Receipt Date: 20240903
  Transmission Date: 20241016
  Serious: Yes (Hospitalization, Other)
  Sender: PURACAP
  Company Number: JP-PURACAP-JP-2024EPCLIT01042

PATIENT
  Age: 9 Year
  Sex: Female

DRUGS (2)
  1. NAPROXEN SODIUM [Suspect]
     Active Substance: NAPROXEN\NAPROXEN SODIUM
     Indication: Osteomyelitis chronic
     Route: 065
  2. NAPROXEN SODIUM [Suspect]
     Active Substance: NAPROXEN\NAPROXEN SODIUM
     Indication: Erythema nodosum
     Route: 065

REACTIONS (3)
  - Drug-induced liver injury [Recovered/Resolved]
  - Drug ineffective for unapproved indication [Unknown]
  - Product use in unapproved indication [Unknown]
